FAERS Safety Report 9841046 (Version 1)
Quarter: 2013Q4

REPORT INFORMATION
  Report Type: Spontaneous
  Country: US (occurrence: None)
  Receive Date: 20131212
  Receipt Date: 20131212
  Transmission Date: 20140711
  Serious: Yes (Hospitalization)
  Sender: FDA-Public Use
  Company Number: 20130709CINRY4558

PATIENT
  Age: 39 Year
  Sex: Female

DRUGS (10)
  1. CINRYZE [Suspect]
     Indication: HEREDITARY ANGIOEDEMA
     Route: 042
     Dates: start: 201301
  2. CINRYZE [Suspect]
     Indication: PROPHYLAXIS
     Route: 042
     Dates: start: 201301
  3. DANAZOL (DANAZOL0 (UNKNOWN)(DANAZOL) [Concomitant]
  4. KALBITOR (ECALLANTIDE) (UNKNOWN) (ECALLANTIDE) [Concomitant]
  5. METFORMIN (METFORMIN) (UNKNOWN) (METFORMIN) [Concomitant]
  6. RANITIDINE (RANITIDINE) (UNKNOWN) (RANITIDINE) [Concomitant]
  7. DIPHENHYDRAMINE (DIPHENHYDRAMINE) (UNKNOWN) (DIPHEMHYDRAMINE) [Concomitant]
  8. DEXLANSOPRAZOLE (DEXLANSOPRAZOLE) (UNKNOWN) (DEXLANPRAZOLE) [Concomitant]
  9. HYDROCHLOROTHIAZIDE (HYDROCHLOROTHIAZIDE) (UNKNOWN) (HYDROCHLOROTHIAZIDE) [Concomitant]
  10. HYDROMORPHONE (HYDROCMORPHONE) (UNKNOWN) (HYDROMORPHONE) [Concomitant]

REACTIONS (3)
  - Hereditary angioedema [None]
  - Therapy change [None]
  - Off label use [None]
